FAERS Safety Report 9684466 (Version 3)
Quarter: 2014Q2

REPORT INFORMATION
  Report Type: Spontaneous
  Country: US (occurrence: US)
  Receive Date: 20131112
  Receipt Date: 20140527
  Transmission Date: 20141212
  Serious: Yes (Other)
  Sender: FDA-Public Use
  Company Number: US-CUBIST PHARMACEUTICAL, INC.-2013CBST000324

PATIENT
  Sex: 0

DRUGS (87)
  1. MORPHINE [Concomitant]
     Dosage: 2 MG, ONCE (PF INJ.)
     Route: 042
     Dates: start: 20130314, end: 20130315
  2. MORPHINE [Concomitant]
     Dosage: 30 MG, Q12HB
     Route: 048
     Dates: start: 20130315, end: 20130316
  3. MORPHINE [Concomitant]
     Dosage: 15 MG, Q12HB
     Route: 048
     Dates: start: 20130317, end: 20130317
  4. MORPHINE [Concomitant]
     Dosage: 15 MG, Q12HB
     Route: 048
     Dates: start: 20130317, end: 20130319
  5. MORPHINE [Concomitant]
     Dosage: 15 MG, Q12HB
     Route: 048
     Dates: start: 20130319, end: 20130322
  6. IBUPROFEN [Concomitant]
     Indication: PRODUCT USED FOR UNKNOWN INDICATION
     Dosage: 400 MG, Q6HP
     Route: 048
     Dates: start: 20130312, end: 20130321
  7. POLYETHYLENE GLYCOL [Concomitant]
     Indication: PRODUCT USED FOR UNKNOWN INDICATION
     Dosage: 17 G, UNK, QDAYP
     Route: 048
     Dates: start: 20130312, end: 20130409
  8. DIAZEPAM [Concomitant]
     Indication: PRODUCT USED FOR UNKNOWN INDICATION
     Dosage: 5 MG, BID
     Route: 048
     Dates: start: 20130312, end: 20130320
  9. DIAZEPAM [Concomitant]
     Dosage: 5 MG, QHS
     Route: 048
     Dates: start: 20130320, end: 20130322
  10. ONDANSETRON HCL [Concomitant]
     Indication: PRODUCT USED FOR UNKNOWN INDICATION
     Dosage: 4 MG, ONCE
     Route: 042
     Dates: start: 20130317, end: 20130318
  11. ONDANSETRON HCL [Concomitant]
     Dosage: 4 MG, Q4HP
     Route: 048
     Dates: start: 20130318, end: 20130409
  12. TRAZODONE [Concomitant]
     Indication: PRODUCT USED FOR UNKNOWN INDICATION
     Dosage: 50 MG, HSPRN
     Route: 048
     Dates: start: 20130319, end: 20130321
  13. TRAZODONE [Concomitant]
     Dosage: 50 MG, ONCE
     Route: 048
     Dates: start: 20130321, end: 20130322
  14. TRAZODONE [Concomitant]
     Dosage: 50 MG, HSPRN
     Route: 048
     Dates: start: 20130323, end: 20130323
  15. TRAZODONE [Concomitant]
     Dosage: 50 MG, HSPRN
     Route: 048
     Dates: start: 20130323, end: 20130409
  16. TRAMADOL HYDROCHLORIDE [Concomitant]
     Indication: PRODUCT USED FOR UNKNOWN INDICATION
     Dosage: 50 MG, Q6HP
     Route: 048
     Dates: start: 20130320, end: 20130324
  17. TRAMADOL HYDROCHLORIDE [Concomitant]
     Dosage: 50 MG, ONCE
     Route: 048
     Dates: start: 20130323, end: 20130324
  18. TRAMADOL HYDROCHLORIDE [Concomitant]
     Dosage: 100 MG, Q6HP
     Route: 048
     Dates: start: 20130324, end: 20130409
  19. CALCIUM CARBONATE [Concomitant]
     Indication: PRODUCT USED FOR UNKNOWN INDICATION
     Dosage: 500 MG, BIDWM
     Route: 048
     Dates: start: 20130324, end: 20130327
  20. CALCIUM CARBONATE [Concomitant]
     Dosage: 500 MG, BIDP
     Route: 048
     Dates: start: 20130327, end: 20130409
  21. DOCUSATE SODIUM [Concomitant]
     Indication: PRODUCT USED FOR UNKNOWN INDICATION
     Dosage: 100 MG, BID, PP
     Route: 048
     Dates: start: 20130322, end: 20130401
  22. DOCUSATE SODIUM [Concomitant]
     Dosage: 100 MG, BIDP
     Route: 048
     Dates: start: 20130401, end: 20130409
  23. GADOBENATE DIMEGLUMINE [Concomitant]
     Indication: PRODUCT USED FOR UNKNOWN INDICATION
     Dosage: 15 ML, ON CALL
     Route: 042
     Dates: start: 20130325, end: 20130325
  24. CITALOPRAM HYDROBROMIDE [Concomitant]
     Indication: PRODUCT USED FOR UNKNOWN INDICATION
     Dosage: 20 MG, QD
     Route: 048
     Dates: start: 20130326, end: 20130327
  25. CUBICIN [Suspect]
     Indication: ENDOCARDITIS STAPHYLOCOCCAL
     Dosage: 500 MG, Q24H
     Route: 042
     Dates: start: 20130312, end: 20130326
  26. CUBICIN [Suspect]
     Indication: STAPHYLOCOCCAL BACTERAEMIA
     Dosage: 6.9 MG/KG, QD
     Route: 042
     Dates: start: 20130312, end: 20130326
  27. DICYCLOMINE                        /00068601/ [Suspect]
     Indication: ABDOMINAL PAIN
     Dosage: 10 MG, Q6HP
     Route: 048
     Dates: start: 20130309, end: 20130311
  28. DICYCLOMINE                        /00068601/ [Suspect]
     Dosage: 10 MG, QID
     Route: 048
     Dates: start: 20130313, end: 20130320
  29. DOCUSATE SODIUM W/SENNA 50-8.6 M [Suspect]
     Indication: PRODUCT USED FOR UNKNOWN INDICATION
     Dosage: 1 DF, BID (50-8.6MG)
     Route: 048
     Dates: start: 20130312, end: 20130322
  30. HYDROXYZINE HCL [Concomitant]
     Indication: PRODUCT USED FOR UNKNOWN INDICATION
     Dosage: 25 MG, Q4HP
     Route: 048
     Dates: start: 20130309, end: 20130311
  31. HYDROXYZINE HCL [Concomitant]
     Dosage: 25 MG, Q4HP
     Route: 030
     Dates: start: 20130309, end: 20130311
  32. HYDROXYZINE HCL [Concomitant]
     Dosage: 25 MG, Q4HP
     Route: 048
     Dates: start: 20130309, end: 20130311
  33. HYDROXYZINE HCL [Concomitant]
     Dosage: 25 MG, Q4HP
     Route: 048
     Dates: start: 20130314, end: 20130322
  34. HYDROXYZINE HCL [Concomitant]
     Dosage: 25 MG, Q6HP
     Route: 048
     Dates: start: 20130323, end: 20130324
  35. HYDROXYZINE HCL [Concomitant]
     Dosage: 50 MG, Q6HP
     Route: 048
     Dates: start: 20130324, end: 20130403
  36. HYDROXYZINE HCL [Concomitant]
     Dosage: 50 MG, Q4HP
     Route: 048
     Dates: start: 20130403, end: 20130409
  37. DIPHENHYDRAMINE [Concomitant]
     Indication: PRODUCT USED FOR UNKNOWN INDICATION
     Dosage: 25 MG, Q4HP
     Route: 030
     Dates: start: 20130309, end: 20130311
  38. DIPHENHYDRAMINE [Concomitant]
     Dosage: 25 MG, Q4HP
     Route: 048
     Dates: start: 20130309, end: 20130321
  39. DIPHENHYDRAMINE [Concomitant]
     Dosage: 25 MG, HSPRN
     Route: 048
     Dates: start: 20130309, end: 20130321
  40. LORAZEPAM [Concomitant]
     Indication: PRODUCT USED FOR UNKNOWN INDICATION
     Dosage: 2 MG, Q4HP
     Route: 048
     Dates: start: 20130309, end: 20130311
  41. LORAZEPAM [Concomitant]
     Dosage: 2 MG, Q4HP
     Route: 030
     Dates: start: 20130309, end: 20130311
  42. LORAZEPAM [Concomitant]
     Dosage: 1 MG, BID
     Route: 048
     Dates: start: 20130309, end: 20130312
  43. LORAZEPAM [Concomitant]
     Dosage: 2 MG, Q1HP
     Route: 042
     Dates: start: 20130312, end: 20130318
  44. LORAZEPAM [Concomitant]
     Dosage: 2 MG, Q4HP
     Route: 042
     Dates: start: 20130312, end: 20130318
  45. LORAZEPAM [Concomitant]
     Dosage: 1 MG, Q4HP
     Route: 042
     Dates: start: 20130312, end: 20130318
  46. LORAZEPAM [Concomitant]
     Dosage: 1 MG Q4HP
     Route: 048
     Dates: start: 20130312, end: 20130318
  47. LORAZEPAM [Concomitant]
     Dosage: 2 MG, Q4HP
     Route: 048
     Dates: start: 20130312, end: 20130318
  48. LORAZEPAM [Concomitant]
     Dosage: 2 MG, ONCE ONLY
     Route: 048
     Dates: start: 20130313, end: 20130314
  49. LORAZEPAM [Concomitant]
     Dosage: 2 MG, ONCE ONLY
     Route: 042
     Dates: start: 20130314, end: 20130315
  50. LORAZEPAM [Concomitant]
     Dosage: 0.5 MG, ONCE ONLY
     Route: 048
     Dates: start: 20130320, end: 20130321
  51. LORAZEPAM [Concomitant]
     Dosage: 1 MG, ONCE ONLY
     Route: 048
     Dates: start: 20130321, end: 20130321
  52. LORAZEPAM [Concomitant]
     Dosage: 1 MG, ONCE ONLY
     Route: 048
     Dates: start: 20130325, end: 20130326
  53. ACETAMINOPHEN [Concomitant]
     Indication: PRODUCT USED FOR UNKNOWN INDICATION
     Dosage: 650 MG, Q6HP
     Route: 048
     Dates: start: 20130309, end: 20130312
  54. ACETAMINOPHEN [Concomitant]
     Dosage: 1000 MG, Q6HP
     Route: 048
     Dates: start: 20130406, end: 20130406
  55. CYCLOBENZAPRINE [Concomitant]
     Indication: PRODUCT USED FOR UNKNOWN INDICATION
     Dosage: 10 MG, Q6HP
     Route: 048
     Dates: start: 20130309, end: 20130311
  56. CYCLOBENZAPRINE [Concomitant]
     Dosage: 10 MG, Q8HA
     Route: 048
     Dates: start: 20130312, end: 20130326
  57. CYCLOBENZAPRINE [Concomitant]
     Dosage: 10 MG, Q8HP
     Route: 048
     Dates: start: 20130326, end: 20130409
  58. CLONIDINE HYDROCHLORIDE [Concomitant]
     Indication: PRODUCT USED FOR UNKNOWN INDICATION
     Dosage: 0.1 MG, Q8HP
     Route: 048
     Dates: start: 20130309, end: 20130314
  59. CLONIDINE HYDROCHLORIDE [Concomitant]
     Dosage: 0.1 MG, Q12HB
     Route: 048
     Dates: start: 20130311, end: 20130311
  60. OXYCODONE [Concomitant]
     Indication: PRODUCT USED FOR UNKNOWN INDICATION
     Dosage: 30 MG, Q6HA
     Route: 048
     Dates: start: 20130309, end: 20130311
  61. OXYCODONE [Concomitant]
     Dosage: 30 MG, Q8HA
     Route: 048
     Dates: start: 20130311, end: 20130311
  62. OXYCODONE [Concomitant]
     Dosage: 15 MG, ONCE
     Route: 048
     Dates: start: 20130312, end: 20130313
  63. THIAMINE HCL [Concomitant]
     Indication: PRODUCT USED FOR UNKNOWN INDICATION
     Dosage: 100 MG, DAILY
     Route: 048
     Dates: start: 20130310, end: 20130317
  64. NICOTINE                           /01033302/ [Concomitant]
     Indication: PRODUCT USED FOR UNKNOWN INDICATION
     Dosage: 21 MG, DERMAL PATCH, QD
     Route: 061
     Dates: start: 20130310, end: 20130318
  65. NICOTINE                           /01033302/ [Concomitant]
     Dosage: 14 MG DAILY, DERMAL PATCH, QD
     Dates: start: 20130319, end: 20130409
  66. SERTRALINE [Concomitant]
     Indication: PRODUCT USED FOR UNKNOWN INDICATION
     Dosage: 25 MG, QD
     Route: 048
     Dates: start: 20130310, end: 20130312
  67. VANCOMYCIN [Concomitant]
     Indication: ENDOCARDITIS STAPHYLOCOCCAL
     Dosage: 1000 MG, ONCE IN D5W
     Route: 042
     Dates: start: 20130311, end: 20130311
  68. VANCOMYCIN [Concomitant]
     Dosage: 1500 MG, Q12HV
     Route: 042
     Dates: start: 20130311, end: 20130312
  69. VANCOMYCIN [Concomitant]
     Dosage: 1250 MG, Q8HV
     Route: 042
     Dates: start: 20130312, end: 20130312
  70. VANCOMYCIN [Concomitant]
     Dosage: 1250 MG, Q8HV
     Route: 042
     Dates: start: 20130326, end: 20130330
  71. VANCOMYCIN [Concomitant]
     Dosage: 1000 MG, Q8HV IN D5W
     Route: 042
     Dates: start: 20130330, end: 20130409
  72. PNEUMOCOCCAL 23 VALPS VACCINE [Concomitant]
     Indication: PRODUCT USED FOR UNKNOWN INDICATION
     Dosage: 0.5 ML, ONCALL
     Route: 030
     Dates: start: 20130311, end: 20130409
  73. INFLUENZA  TRI-SPLIT VACCINE [Concomitant]
     Indication: PRODUCT USED FOR UNKNOWN INDICATION
     Dosage: 45 MCG, ONCALL
     Route: 030
     Dates: start: 20130311, end: 20130409
  74. ENOXAPARIN SODIUM [Concomitant]
     Indication: PRODUCT USED FOR UNKNOWN INDICATION
     Dosage: 40 MG, Q24HV
     Route: 058
     Dates: start: 20130311, end: 20130409
  75. SODIUM CHLORIDE 0.9% [Concomitant]
     Indication: PRODUCT USED FOR UNKNOWN INDICATION
     Dosage: 1000 ML, DEMAND
     Route: 042
     Dates: start: 20130311, end: 20130312
  76. SODIUM CHLORIDE 0.9% [Concomitant]
     Dosage: 50 ML, Q24H
     Route: 042
     Dates: start: 20130312, end: 20130324
  77. SODIUM CHLORIDE 0.9% [Concomitant]
     Dosage: 50 ML, Q24HV
     Route: 042
     Dates: start: 20130324, end: 20130326
  78. DEXTROSE 5% IN WATER [Concomitant]
     Indication: PRODUCT USED FOR UNKNOWN INDICATION
     Dosage: 500 ML, Q12HV
     Route: 042
     Dates: start: 20130311, end: 20130312
  79. DEXTROSE 5% IN WATER [Concomitant]
     Dosage: 250 ML, Q12HV
     Route: 042
     Dates: start: 20130312, end: 20130312
  80. DEXTROSE 5% IN WATER [Concomitant]
     Dosage: 250 ML, Q8HV
     Route: 042
     Dates: start: 20130326, end: 20130330
  81. CUSTOM [Concomitant]
     Indication: PRODUCT USED FOR UNKNOWN INDICATION
     Dosage: 500 ML, Q12HV
     Route: 042
     Dates: start: 20130311, end: 20130312
  82. CUSTOM [Concomitant]
     Dosage: 250 ML, Q8HV
     Route: 042
     Dates: start: 20130312, end: 20130312
  83. CUSTOM [Concomitant]
     Dosage: 50 ML, Q24HV
     Route: 042
     Dates: start: 20130312, end: 20130324
  84. CUSTOM [Concomitant]
     Dosage: 50 ML, Q8HV
     Route: 042
     Dates: start: 20130324, end: 20130326
  85. CUSTOM [Concomitant]
     Dosage: 250 ML, Q8HV
     Route: 042
     Dates: start: 20130326, end: 20130330
  86. MORPHINE [Concomitant]
     Indication: PRODUCT USED FOR UNKNOWN INDICATION
     Dosage: 60 MG, Q12HB
     Route: 048
     Dates: start: 20130311, end: 20130315
  87. MORPHINE [Concomitant]
     Dosage: 4 MG, ONCE (PF INJ.)
     Route: 042
     Dates: start: 20130314, end: 20130315

REACTIONS (20)
  - Drug-induced liver injury [Recovered/Resolved]
  - Staphylococcal bacteraemia [None]
  - Pleuritic pain [None]
  - Aspartate aminotransferase increased [None]
  - Alanine aminotransferase increased [None]
  - Blood alkaline phosphatase increased [None]
  - Hyperbilirubinaemia [None]
  - Blood albumin decreased [None]
  - Blood calcium decreased [None]
  - Endocarditis [None]
  - Pulmonary mass [None]
  - Pulmonary mass [None]
  - Lung infection [None]
  - Pleural effusion [None]
  - Septic embolus [None]
  - Hepatitis A antibody positive [None]
  - Drug screen positive [None]
  - Gamma-glutamyltransferase increased [None]
  - Mixed liver injury [None]
  - Haemoglobin decreased [None]
